FAERS Safety Report 7138155-0 (Version None)
Quarter: 2010Q4

REPORT INFORMATION
  Report Type: 
  Country: None (occurrence: None)
  Receive Date: 20101201
  Receipt Date: 20101201
  Transmission Date: 20110411
  Serious: No
  Sender: FDA-Public Use
  Company Number: None

PATIENT
  Age: 57 Year
  Sex: Male

DRUGS (8)
  1. REVLIMID [Suspect]
     Indication: MULTIPLE MYELOMA
     Dosage: 25MG DAILY 21D/28D ORALLY
     Route: 048
     Dates: start: 20070801
  2. DECADRON [Concomitant]
  3. FLEXERIL [Concomitant]
  4. LEVITRA [Concomitant]
  5. PGE-1/PAPAVERINE [Concomitant]
  6. GLIPIZIDE [Concomitant]
  7. ZOCOR [Concomitant]
  8. NAPROXEN [Concomitant]

REACTIONS (1)
  - LEUKOPENIA [None]
